FAERS Safety Report 23149361 (Version 1)
Quarter: 2023Q4

REPORT INFORMATION
  Report Type: Spontaneous
  Country: US (occurrence: US)
  Receive Date: 20231106
  Receipt Date: 20231106
  Transmission Date: 20240110
  Serious: Yes (Other)
  Sender: FDA-Public Use
  Company Number: US-BRISTOL-MYERS SQUIBB COMPANY-2023-157997

PATIENT
  Age: 57 Year
  Sex: Female
  Weight: 124.74 kg

DRUGS (2)
  1. ELIQUIS [Suspect]
     Active Substance: APIXABAN
     Indication: Atrial fibrillation
     Dosage: DOSE : 5 MG;     FREQ : TWICE A DAY
     Route: 048
     Dates: start: 202208
  2. METOPROLOL [Concomitant]
     Active Substance: METOPROLOL
     Indication: Migraine

REACTIONS (1)
  - Lung neoplasm malignant [Unknown]
